FAERS Safety Report 18387080 (Version 1)
Quarter: 2020Q4

REPORT INFORMATION
  Report Type: Spontaneous
  Country: US (occurrence: US)
  Receive Date: 20201015
  Receipt Date: 20201015
  Transmission Date: 20210114
  Serious: No
  Sender: FDA-Public Use
  Company Number: None

PATIENT
  Age: 75 Year
  Sex: Male

DRUGS (1)
  1. ENBREL [Suspect]
     Active Substance: ETANERCEPT
     Indication: RHEUMATOID ARTHRITIS
     Dosage: OTHER FREQUENCY:EVERY 2 WEEKS; AS DIRECTED?
     Route: 058
     Dates: start: 202004

REACTIONS (2)
  - Therapy interrupted [None]
  - Haemodialysis [None]
